FAERS Safety Report 5635857-X (Version None)
Quarter: 2008Q1

REPORT INFORMATION
  Report Type: 
  Country: None (occurrence: None)
  Receive Date: 20080221
  Receipt Date: 20071217
  Transmission Date: 20080703
  Serious: Yes (Hospitalization)
  Sender: FDA-Public Use
  Company Number: 2005EU001702

PATIENT
  Age: 46 Year
  Sex: Male

DRUGS (4)
  1. TACROLIMUS [Suspect]
     Indication: RENAL TRANSPLANT
     Dosage: 5.00 MG, BID, ORAL
     Route: 048
     Dates: start: 20040819
  2. DACLIZUMAB(DACLIZUMAB) [Suspect]
     Indication: RENAL TRANSPLANT
     Dosage: 2.00 MG, UID/QD, IV NOS
     Route: 042
     Dates: start: 20040819, end: 20041015
  3. MYCOPHENOLATE MOFETIL [Suspect]
     Indication: RENAL TRANSPLANT
     Dosage: ORAL
     Route: 048
     Dates: start: 20040819
  4. PREDNISOLONE [Suspect]
     Indication: RENAL TRANSPLANT
     Dosage: 5.00 MG, UID/QD, ORAL
     Route: 048
     Dates: start: 20040821

REACTIONS (1)
  - HYPERPARATHYROIDISM [None]
